FAERS Safety Report 6905980-8 (Version None)
Quarter: 2010Q3

REPORT INFORMATION
  Report Type: 
  Country: None (occurrence: None)
  Receive Date: 20100803
  Receipt Date: 20100803
  Transmission Date: 20110219
  Serious: Yes (Hospitalization)
  Sender: FDA-Public Use
  Company Number: None

PATIENT
  Age: 60 Year
  Sex: Male
  Weight: 111.5 kg

DRUGS (1)
  1. ARIPIPRAZOLE [Suspect]
     Indication: SCHIZOAFFECTIVE DISORDER
     Dosage: 20 MG AT BEDTIME PO
     Route: 048
     Dates: start: 20100210, end: 20100415

REACTIONS (7)
  - EXTRAPYRAMIDAL DISORDER [None]
  - HYPERTONIA [None]
  - INTENTION TREMOR [None]
  - MENINGEAL DISORDER [None]
  - NEUROLEPTIC MALIGNANT SYNDROME [None]
  - POSTURING [None]
  - STATUS EPILEPTICUS [None]
